FAERS Safety Report 19962826 (Version 1)
Quarter: 2021Q4

REPORT INFORMATION
  Report Type: Spontaneous
  Country: US (occurrence: US)
  Receive Date: 20211018
  Receipt Date: 20211018
  Transmission Date: 20220303
  Serious: Yes (Hospitalization, Disabling, Other)
  Sender: FDA-Public Use
  Company Number: US-AMGEN-USASP2021158559

PATIENT
  Age: 70 Year
  Sex: Female

DRUGS (1)
  1. CORLANOR [Suspect]
     Active Substance: IVABRADINE HYDROCHLORIDE
     Indication: Cardiac disorder
     Dosage: 5 MILLIGRAM, BID
     Route: 065
     Dates: start: 20210213, end: 20210213

REACTIONS (5)
  - Blindness unilateral [Unknown]
  - Open globe injury [Unknown]
  - Loss of consciousness [Unknown]
  - Eye operation [Unknown]
  - Off label use [Unknown]

NARRATIVE: CASE EVENT DATE: 20210213
